FAERS Safety Report 7194374-9 (Version None)
Quarter: 2010Q4

REPORT INFORMATION
  Report Type: 
  Country: None (occurrence: None)
  Receive Date: 20101223
  Receipt Date: 20101214
  Transmission Date: 20110411
  Serious: Yes (Death)
  Sender: FDA-Public Use
  Company Number: US-CELGENEUS-163-21880-10102376

PATIENT
  Sex: Male

DRUGS (2)
  1. REVLIMID [Suspect]
     Indication: MULTIPLE MYELOMA
     Route: 048
     Dates: start: 20080701, end: 20090501
  2. REVLIMID [Suspect]
     Route: 048
     Dates: start: 20090601, end: 20100601

REACTIONS (3)
  - FAILURE TO THRIVE [None]
  - MULTIPLE MYELOMA [None]
  - RESPIRATORY FAILURE [None]
